FAERS Safety Report 9509162 (Version 1)
Quarter: 2013Q3

REPORT INFORMATION
  Report Type: Spontaneous
  Country: US (occurrence: US)
  Receive Date: 20130909
  Receipt Date: 20130909
  Transmission Date: 20140515
  Serious: No
  Sender: FDA-Public Use
  Company Number: US-BRISTOL-MYERS SQUIBB COMPANY-17355066

PATIENT
  Age: 54 Year
  Sex: Female

DRUGS (3)
  1. ABILIFY [Suspect]
     Indication: MAJOR DEPRESSION
  2. TOPAMAX [Suspect]
     Dosage: AT NIGHT
  3. XANAX [Suspect]

REACTIONS (1)
  - Headache [Unknown]
